FAERS Safety Report 9894364 (Version 1)
Quarter: 2014Q1

REPORT INFORMATION
  Report Type: Spontaneous
  Country: US (occurrence: US)
  Receive Date: 20140213
  Receipt Date: 20140213
  Transmission Date: 20141002
  Serious: Yes (Hospitalization)
  Sender: FDA-Public Use
  Company Number: US-PFIZER INC-2014039170

PATIENT
  Age: 66 Year
  Sex: Female
  Weight: 111.11 kg

DRUGS (9)
  1. EFFEXOR XR [Suspect]
     Indication: BIPOLAR DISORDER
     Dosage: UNK
  2. EFFEXOR XR [Suspect]
     Indication: ATTENTION DEFICIT/HYPERACTIVITY DISORDER
     Dosage: 350 MG, 1X/DAY
     Dates: start: 201307
  3. EFFEXOR XR [Suspect]
     Dosage: 150 MG, 1X/DAY
     Dates: start: 2014
  4. OSTEO BI-FLEX [Concomitant]
     Indication: ARTHROPATHY
     Dosage: UNK
  5. WAL-ZYR [Concomitant]
     Indication: HYPERSENSITIVITY
     Dosage: 10 MG, 1X/DAY
  6. ARMOUR [Concomitant]
     Indication: THYROID DISORDER
     Dosage: 90 MG, 1X/DAY
  7. LORAZEPAM [Concomitant]
     Dosage: 0.5 MG, 2X/DAY
  8. METHYLPHENIDATE [Concomitant]
     Dosage: 10MG [2 TABLETS OF 5MG IN MORNING AND TWO IN AFTERNOON], 2X/DAY
  9. TRAZODONE [Concomitant]
     Indication: SLEEP DISORDER
     Dosage: 150 MG, 1X/DAY

REACTIONS (6)
  - Rash [Unknown]
  - Frustration [Unknown]
  - Drug withdrawal syndrome [Unknown]
  - Bladder pain [Unknown]
  - Urinary tract pain [Unknown]
  - Pain in extremity [Unknown]
